FAERS Safety Report 4571791-4 (Version None)
Quarter: 2005Q1

REPORT INFORMATION
  Report Type: 
  Country: None (occurrence: None)
  Receive Date: 20050202
  Receipt Date: 20050202
  Transmission Date: 20050727
  Serious: Yes (Death)
  Sender: FDA-Public Use
  Company Number: None

PATIENT
  Age: 16 Year
  Sex: Male
  Weight: 46.2669 kg

DRUGS (1)
  1. PROZAC WEEKLY [Suspect]
     Indication: ATTENTION DEFICIT/HYPERACTIVITY DISORDER
     Dosage: 1 WEEKLY  ORAL
     Route: 048
     Dates: start: 20011230, end: 20020113

REACTIONS (1)
  - INJURY ASPHYXIATION [None]
